APPROVED DRUG PRODUCT: PYRIDOSTIGMINE BROMIDE
Active Ingredient: PYRIDOSTIGMINE BROMIDE
Strength: 180MG
Dosage Form/Route: TABLET, EXTENDED RELEASE;ORAL
Application: A205464 | Product #001 | TE Code: AB
Applicant: RISING PHARMA HOLDINGS INC
Approved: Aug 15, 2017 | RLD: No | RS: No | Type: RX